FAERS Safety Report 7503403-1 (Version None)
Quarter: 2011Q2

REPORT INFORMATION
  Report Type: 
  Country: None (occurrence: None)
  Receive Date: 20110525
  Receipt Date: 20110516
  Transmission Date: 20111010
  Serious: Yes (Other)
  Sender: FDA-Public Use
  Company Number: B0717837A

PATIENT
  Sex: Male

DRUGS (5)
  1. FLUDROCORTISONE ACETATE [Concomitant]
     Dosage: 50MCG PER DAY
  2. LEVOTHYROXINE SODIUM [Concomitant]
     Indication: HYPOTHYROIDISM
     Dosage: 250MCG PER DAY
  3. VOTRIENT [Suspect]
     Indication: RENAL CANCER METASTATIC
     Dosage: 800MG PER DAY
     Route: 048
     Dates: start: 20101007
  4. ZANTAC [Concomitant]
     Indication: GASTRIC ULCER
     Dosage: 150MG PER DAY
  5. HYDROCORTISONE [Concomitant]

REACTIONS (6)
  - THROMBOCYTOPENIA [None]
  - DIARRHOEA [None]
  - SWOLLEN TONGUE [None]
  - EMBOLISM [None]
  - RESPIRATORY DISTRESS [None]
  - AMAUROSIS FUGAX [None]
